FAERS Safety Report 19840998 (Version 6)
Quarter: 2022Q1

REPORT INFORMATION
  Report Type: Report from Study
  Country: CA (occurrence: CA)
  Receive Date: 20210915
  Receipt Date: 20220225
  Transmission Date: 20220423
  Serious: Yes (Hospitalization, Other)
  Sender: FDA-Public Use
  Company Number: CA-HLS-202108295

PATIENT
  Age: 53 Year
  Sex: Male

DRUGS (2)
  1. CLOZARIL [Suspect]
     Active Substance: CLOZAPINE
     Indication: Product used for unknown indication
     Route: 048
     Dates: start: 19941205
  2. CLOZARIL [Suspect]
     Active Substance: CLOZAPINE
     Indication: Product used for unknown indication
     Route: 048
     Dates: start: 19941205

REACTIONS (10)
  - Neutrophilia [Unknown]
  - Neutropenia [Unknown]
  - Biliary obstruction [Unknown]
  - Product dose omission issue [Unknown]
  - Gallbladder disorder [Recovered/Resolved]
  - Diffuse large B-cell lymphoma [Unknown]
  - Leukocytosis [Unknown]
  - Cerebrovascular accident [Unknown]
  - Malaise [Unknown]
  - Leukopenia [Unknown]

NARRATIVE: CASE EVENT DATE: 20210927
